FAERS Safety Report 6010966-4 (Version None)
Quarter: 2008Q4

REPORT INFORMATION
  Report Type: 
  Country: None (occurrence: None)
  Receive Date: 20081216
  Receipt Date: 20081204
  Transmission Date: 20090506
  Serious: Yes (Disabling)
  Sender: FDA-Public Use
  Company Number: 08H-163-0315308-00

PATIENT
  Sex: Female

DRUGS (1)
  1. MARCAINE HYDROCHLORIDE W/ EPINEPHRINE [Suspect]
     Indication: ANALGESIA
     Dosage: NOT REPORTED, CONTINUOUS, INJECTION
     Dates: start: 20070401

REACTIONS (1)
  - CHONDROLYSIS [None]
